FAERS Safety Report 9356416 (Version 1)
Quarter: 2013Q2

REPORT INFORMATION
  Report Type: Spontaneous
  Country: FR (occurrence: FR)
  Receive Date: 20130619
  Receipt Date: 20130619
  Transmission Date: 20140414
  Serious: Yes (Death)
  Sender: FDA-Public Use
  Company Number: FR-B.I. PHARMACEUTICALS,INC./RIDGEFIELD-2013-FF-01665FF

PATIENT
  Age: 81 Year
  Sex: Male

DRUGS (2)
  1. PRADAXA [Suspect]
     Dosage: 220 MG
     Route: 048
     Dates: start: 20130607, end: 20130610
  2. PREVISCAN [Suspect]
     Route: 048
     Dates: start: 20120125, end: 20130605

REACTIONS (3)
  - Cerebral haemorrhage [Fatal]
  - Activated partial thromboplastin time prolonged [Fatal]
  - International normalised ratio increased [Fatal]
